FAERS Safety Report 15372097 (Version 4)
Quarter: 2019Q2

REPORT INFORMATION
  Report Type: Spontaneous
  Country: US (occurrence: US)
  Receive Date: 20180911
  Receipt Date: 20190405
  Transmission Date: 20190711
  Serious: Yes (Congenital Anomaly, Other)
  Sender: FDA-Public Use
  Company Number: PHEH2018US038041

PATIENT
  Sex: Male

DRUGS (1)
  1. ZOFRAN [Suspect]
     Active Substance: ONDANSETRON HYDROCHLORIDE
     Indication: FOETAL EXPOSURE DURING PREGNANCY
     Dosage: MOTHER DOSE: 01 DF, TID
     Route: 064

REACTIONS (9)
  - Cardiac murmur [Unknown]
  - Pyrexia [Unknown]
  - Depression [Unknown]
  - Anxiety [Unknown]
  - Foetal exposure during pregnancy [Unknown]
  - Cleft lip and palate [Unknown]
  - Generalised tonic-clonic seizure [Unknown]
  - Rash [Unknown]
  - Attention deficit/hyperactivity disorder [Unknown]
